FAERS Safety Report 23863615 (Version 1)
Quarter: 2024Q2

REPORT INFORMATION
  Report Type: Report from Study
  Country: CL (occurrence: None)
  Receive Date: 20240516
  Receipt Date: 20240516
  Transmission Date: 20240715
  Serious: Yes (Other)
  Sender: FDA-Public Use
  Company Number: 2024A112457

PATIENT
  Age: 37 Year
  Sex: Female

DRUGS (1)
  1. BUDESONIDE\FORMOTEROL FUMARATE DIHYDRATE [Suspect]
     Active Substance: BUDESONIDE\FORMOTEROL FUMARATE DIHYDRATE
     Indication: Asthma
     Dosage: 160 UG/INHAL, FOUR TIMES A DAY
     Route: 055
     Dates: start: 202403

REACTIONS (1)
  - Palate injury [Not Recovered/Not Resolved]

NARRATIVE: CASE EVENT DATE: 20240301
